FAERS Safety Report 8556675-9 (Version None)
Quarter: 2012Q3

REPORT INFORMATION
  Report Type: 
  Country: None (occurrence: None)
  Receive Date: 20120726
  Receipt Date: 20120726
  Transmission Date: 20120928
  Serious: Yes (Life-Threatening)
  Sender: FDA-Public Use
  Company Number: None

PATIENT
  Sex: Female

DRUGS (1)
  1. CEFTIN [Suspect]
     Indication: URINARY TRACT INFECTION
     Dosage: 250 MG TWICE A DAY PO
     Route: 048
     Dates: start: 20120719, end: 20120720

REACTIONS (4)
  - RASH [None]
  - SKIN OEDEMA [None]
  - FEELING HOT [None]
  - PRURITUS [None]
